FAERS Safety Report 11202233 (Version 1)
Quarter: 2015Q2

REPORT INFORMATION
  Report Type: Spontaneous
  Country: IE (occurrence: IE)
  Receive Date: 20150619
  Receipt Date: 20150619
  Transmission Date: 20150821
  Serious: Yes (Other)
  Sender: FDA-Public Use
  Company Number: IE-TEVA-570947ISR

PATIENT
  Age: 67 Year
  Sex: Male

DRUGS (5)
  1. ATORVASTATIN TEVA [Suspect]
     Active Substance: ATORVASTATIN
     Dosage: 20 MILLIGRAM DAILY;
  2. PANTOPRAZOLE TEVA [Suspect]
     Active Substance: PANTOPRAZOLE SODIUM
     Dosage: 40 MILLIGRAM DAILY;
  3. BISOP (BISOPROLOL FUMARATE) [Concomitant]
     Active Substance: BISOPROLOL FUMARATE
     Dosage: 2.5 MILLIGRAM DAILY;
  4. RAPORSIN (DOXAZOSIN MESYLATE) [Concomitant]
     Active Substance: DOXAZOSIN MESYLATE
     Dosage: 8 MILLIGRAM DAILY;
  5. PERINDOPRIL TOSILATE TEVA [Suspect]
     Active Substance: PERINDOPRIL

REACTIONS (4)
  - Product substitution issue [Recovered/Resolved]
  - Product substitution issue [None]
  - Blood pressure increased [Recovered/Resolved]
  - Product quality issue [None]

NARRATIVE: CASE EVENT DATE: 2015
